FAERS Safety Report 16711805 (Version 6)
Quarter: 2020Q2

REPORT INFORMATION
  Report Type: Spontaneous
  Country: US (occurrence: US)
  Receive Date: 20190816
  Receipt Date: 20200608
  Transmission Date: 20200713
  Serious: Yes (Hospitalization, Other)
  Sender: FDA-Public Use
  Company Number: US-SA-2019SA225892

PATIENT

DRUGS (19)
  1. PRALUENT [Suspect]
     Active Substance: ALIROCUMAB
     Indication: TYPE V HYPERLIPIDAEMIA
     Dosage: 150 MG, QOW
     Route: 058
     Dates: start: 20180531
  2. SODIUM BICARBONATE. [Concomitant]
     Active Substance: SODIUM BICARBONATE
  3. ASPIRIN [ACETYLSALICYLIC ACID] [Concomitant]
     Active Substance: ASPIRIN
  4. IMDUR [Concomitant]
     Active Substance: ISOSORBIDE MONONITRATE
  5. FUROSEMIDE. [Concomitant]
     Active Substance: FUROSEMIDE
  6. PLAVIX [Concomitant]
     Active Substance: CLOPIDOGREL BISULFATE
  7. PROTONIX [OMEPRAZOLE] [Concomitant]
     Active Substance: OMEPRAZOLE
  8. CODEINE [Concomitant]
     Active Substance: CODEINE
  9. HYDROCODONE [Concomitant]
     Active Substance: HYDROCODONE
  10. XALATAN [Concomitant]
     Active Substance: LATANOPROST
  11. RANEXA [Concomitant]
     Active Substance: RANOLAZINE
  12. LEVOTHYROXIN [Concomitant]
     Active Substance: LEVOTHYROXINE
  13. TYLENOL [Concomitant]
     Active Substance: ACETAMINOPHEN
  14. COLACE [Concomitant]
     Active Substance: DOCUSATE SODIUM
  15. PROCARDIA [Concomitant]
     Active Substance: NIFEDIPINE
  16. CALCIUM [Concomitant]
     Active Substance: CALCIUM
  17. INDERAL [Concomitant]
     Active Substance: PROPRANOLOL HYDROCHLORIDE
  18. GABAPENTIN. [Concomitant]
     Active Substance: GABAPENTIN
  19. VALSARTAN. [Concomitant]
     Active Substance: VALSARTAN

REACTIONS (6)
  - Anaemia [Unknown]
  - Cellulitis [Unknown]
  - Atherectomy [Unknown]
  - Gastrointestinal haemorrhage [Unknown]
  - Coronary artery occlusion [Unknown]
  - Coronary artery surgery [Unknown]

NARRATIVE: CASE EVENT DATE: 20200124
